FAERS Safety Report 5813365-0 (Version None)
Quarter: 2008Q3

REPORT INFORMATION
  Report Type: 
  Country: None (occurrence: None)
  Receive Date: 20080717
  Receipt Date: 20080714
  Transmission Date: 20090109
  Serious: Yes (Other)
  Sender: FDA-Public Use
  Company Number: GB-ROCHE-570519

PATIENT
  Sex: Female
  Weight: 152.4 kg

DRUGS (3)
  1. ORLISTAT [Suspect]
     Indication: OBESITY
     Route: 048
     Dates: start: 20080507
  2. CLOMIPRAMINE HCL [Concomitant]
     Indication: DEPRESSION
     Dosage: REPORTED AS CHLORMIPRAMINE
     Route: 048
  3. CETIRIZINE HCL [Concomitant]
     Dosage: START DATE REPORTED AS SEASONAL
     Route: 048

REACTIONS (1)
  - ENDOMETRIAL CANCER [None]
